FAERS Safety Report 11882889 (Version 1)
Quarter: 2015Q4

REPORT INFORMATION
  Report Type: Spontaneous
  Country: NL (occurrence: NL)
  Receive Date: 20151231
  Receipt Date: 20151231
  Transmission Date: 20160305
  Serious: Yes (Other)
  Sender: FDA-Public Use
  Company Number: NL-BAYER-2015-495766

PATIENT
  Age: 43 Year
  Sex: Male

DRUGS (3)
  1. FONDAPARINUX [Interacting]
     Active Substance: FONDAPARINUX
     Indication: ACUTE CORONARY SYNDROME
  2. ACETYLSALICYLIC ACID (} 100 MG) [Suspect]
     Active Substance: ASPIRIN
     Indication: ACUTE CORONARY SYNDROME
  3. CLOPIDOGREL [Interacting]
     Active Substance: CLOPIDOGREL BISULFATE
     Indication: ACUTE CORONARY SYNDROME

REACTIONS (2)
  - Haemothorax [None]
  - Labelled drug-drug interaction medication error [None]
